FAERS Safety Report 17988697 (Version 1)
Quarter: 2020Q3

REPORT INFORMATION
  Report Type: Spontaneous
  Country: US (occurrence: US)
  Receive Date: 20200706
  Receipt Date: 20200706
  Transmission Date: 20201103
  Serious: No
  Sender: FDA-Public Use
  Company Number: None

PATIENT
  Age: 22 Year
  Sex: Female
  Weight: 63.5 kg

DRUGS (1)
  1. NEXPLANON [Suspect]
     Active Substance: ETONOGESTREL

REACTIONS (8)
  - Headache [None]
  - Weight increased [None]
  - Menstruation irregular [None]
  - Acne [None]
  - Depression [None]
  - Breast pain [None]
  - Nausea [None]
  - Menorrhagia [None]

NARRATIVE: CASE EVENT DATE: 20180418
